FAERS Safety Report 14820741 (Version 1)
Quarter: 2018Q2

REPORT INFORMATION
  Report Type: Spontaneous
  Country: IT (occurrence: IT)
  Receive Date: 20180427
  Receipt Date: 20180427
  Transmission Date: 20180711
  Serious: Yes (Other)
  Sender: FDA-Public Use
  Company Number: IT-AUROBINDO-AUR-APL-2018-022602

PATIENT
  Age: 44 Year
  Sex: Female

DRUGS (1)
  1. ARIPIPRAZOLE TABLETS [Suspect]
     Active Substance: ARIPIPRAZOLE
     Indication: PRODUCT USED FOR UNKNOWN INDICATION
     Dosage: 10 MG, QD
     Route: 048

REACTIONS (6)
  - Delusion [Unknown]
  - Speech disorder [Unknown]
  - Aggression [Unknown]
  - Drug ineffective [Unknown]
  - Irritability [Unknown]
  - Thinking abnormal [Unknown]
